FAERS Safety Report 9332492 (Version 2)
Quarter: 2013Q2

REPORT INFORMATION
  Report Type: Spontaneous
  Country: GB (occurrence: GB)
  Receive Date: 20130606
  Receipt Date: 20130619
  Transmission Date: 20140414
  Serious: Yes (Disabling)
  Sender: FDA-Public Use
  Company Number: GB-JNJFOC-20130522234

PATIENT
  Age: 88 Year
  Sex: Male
  Weight: 73 kg

DRUGS (1)
  1. XARELTO [Suspect]
     Indication: PRODUCT USED FOR UNKNOWN INDICATION
     Route: 048
     Dates: start: 20130325

REACTIONS (4)
  - Motor dysfunction [Recovered/Resolved]
  - Depressed mood [Recovering/Resolving]
  - Depression [Recovering/Resolving]
  - Malaise [Recovering/Resolving]
